FAERS Safety Report 17364511 (Version 3)
Quarter: 2025Q3

REPORT INFORMATION
  Report Type: Spontaneous
  Country: EU (occurrence: EU)
  Receive Date: 20200204
  Receipt Date: 20250703
  Transmission Date: 20251020
  Serious: Yes (Other)
  Sender: AUROBINDO
  Company Number: EU-002147023-NVSC2019PT085673

PATIENT
  Age: 37 Year
  Sex: Female

DRUGS (3)
  1. AMLODIPINE\VALSARTAN [Suspect]
     Active Substance: AMLODIPINE\VALSARTAN
     Indication: Hypertension
     Route: 065
  2. PREDNISOLONE [Concomitant]
     Active Substance: PREDNISOLONE
     Indication: Product used for unknown indication
     Route: 042
  3. PREDNISOLONE [Concomitant]
     Active Substance: PREDNISOLONE
     Dosage: 1 MILLIGRAM, ONCE A DAY
     Route: 048

REACTIONS (4)
  - Macular degeneration [Unknown]
  - Thrombotic microangiopathy [Unknown]
  - Retinopathy hypertensive [Unknown]
  - Drug ineffective [Unknown]
